FAERS Safety Report 7396323-7 (Version None)
Quarter: 2011Q2

REPORT INFORMATION
  Report Type: 
  Country: None (occurrence: None)
  Receive Date: 20110406
  Receipt Date: 20110401
  Transmission Date: 20111010
  Serious: Yes (Death)
  Sender: FDA-Public Use
  Company Number: JP-JNJFOC-20110304562

PATIENT
  Sex: Female
  Weight: 45 kg

DRUGS (16)
  1. SELENICA-R [Concomitant]
     Route: 048
  2. AKINETON [Concomitant]
     Indication: PARKINSONISM
     Route: 048
  3. METHYCOBAL [Concomitant]
     Indication: HYPOAESTHESIA
     Route: 048
  4. SENNOSIDE [Concomitant]
     Route: 048
  5. ESTAZOLAM [Concomitant]
     Indication: SCHIZOPHRENIA
     Route: 048
  6. IMIDAFENACIN [Concomitant]
     Indication: NEUROGENIC BLADDER
     Route: 048
  7. MUCOSTA [Concomitant]
     Route: 048
  8. INVEGA [Suspect]
     Indication: HALLUCINATION
     Route: 048
  9. MUCOSTA [Concomitant]
     Route: 048
  10. SENNOSIDE [Concomitant]
     Indication: CONSTIPATION
     Route: 048
  11. LONASEN [Concomitant]
     Route: 048
  12. UBRETID [Concomitant]
     Indication: NEUROGENIC BLADDER
     Route: 048
  13. MYSLEE [Concomitant]
     Indication: SCHIZOPHRENIA
     Route: 048
  14. LONASEN [Concomitant]
     Route: 048
  15. CONTOMIN [Concomitant]
     Indication: SCHIZOPHRENIA
     Route: 048
  16. SELENICA-R [Concomitant]
     Route: 048

REACTIONS (1)
  - SUDDEN DEATH [None]
